FAERS Safety Report 16245592 (Version 1)
Quarter: 2019Q2

REPORT INFORMATION
  Report Type: Spontaneous
  Country: JP (occurrence: JP)
  Receive Date: 20190426
  Receipt Date: 20190426
  Transmission Date: 20190711
  Serious: Yes (Death, Other)
  Sender: FDA-Public Use
  Company Number: JP-JNJFOC-20190432153

PATIENT

DRUGS (3)
  1. IMBRUVICA [Suspect]
     Active Substance: IBRUTINIB
     Indication: CHRONIC LYMPHOCYTIC LEUKAEMIA
     Route: 048
  2. IMBRUVICA [Suspect]
     Active Substance: IBRUTINIB
     Indication: MANTLE CELL LYMPHOMA
     Route: 048
  3. IMBRUVICA [Suspect]
     Active Substance: IBRUTINIB
     Indication: B-CELL SMALL LYMPHOCYTIC LYMPHOMA
     Route: 048

REACTIONS (25)
  - Dementia [Unknown]
  - Blood albumin decreased [Unknown]
  - Arthralgia [Unknown]
  - Respiratory disorder [Unknown]
  - Neutrophil count decreased [Unknown]
  - Diarrhoea [Unknown]
  - Stomatitis [Unknown]
  - White blood cell count decreased [Unknown]
  - Blood bilirubin increased [Unknown]
  - Atrial fibrillation [Unknown]
  - Neuropathy peripheral [Unknown]
  - Cardiac failure [Unknown]
  - Alanine aminotransferase increased [Unknown]
  - Lymphocyte count decreased [Unknown]
  - Anaemia [Unknown]
  - Nausea [Unknown]
  - Rash [Unknown]
  - Haemorrhagic diathesis [Unknown]
  - Febrile neutropenia [Unknown]
  - Platelet count decreased [Unknown]
  - Disease progression [Fatal]
  - Aspartate aminotransferase increased [Unknown]
  - Infection [Unknown]
  - Blood creatinine increased [Unknown]
  - Fatigue [Unknown]
